FAERS Safety Report 10697660 (Version 2)
Quarter: 2015Q2

REPORT INFORMATION
  Report Type: Spontaneous
  Country: PT (occurrence: PT)
  Receive Date: 20150108
  Receipt Date: 20150625
  Transmission Date: 20150821
  Serious: Yes (Other)
  Sender: FDA-Public Use
  Company Number: PT-AMGEN-PRTSP2014102719

PATIENT
  Age: 33 Year
  Sex: Female

DRUGS (3)
  1. ARAVA [Interacting]
     Active Substance: LEFLUNOMIDE
     Indication: PRODUCT USED FOR UNKNOWN INDICATION
     Dosage: 1 DF, 1X/DAY
     Route: 065
  2. ARAVA [Interacting]
     Active Substance: LEFLUNOMIDE
     Dosage: 1 DF, 1X/DAY
     Route: 065
  3. ENBREL [Suspect]
     Active Substance: ETANERCEPT
     Indication: PRODUCT USED FOR UNKNOWN INDICATION
     Dosage: 1 DF, UNK
     Route: 065
     Dates: start: 20120706

REACTIONS (2)
  - Respiratory tract infection [Unknown]
  - Drug interaction [Unknown]

NARRATIVE: CASE EVENT DATE: 201409
